APPROVED DRUG PRODUCT: NIMODIPINE
Active Ingredient: NIMODIPINE
Strength: 30MG
Dosage Form/Route: CAPSULE;ORAL
Application: A077811 | Product #001 | TE Code: AB
Applicant: HERITAGE PHARMACEUTICALS INC DBA AVET PHARMACEUTICALS INC
Approved: May 2, 2007 | RLD: No | RS: No | Type: RX